FAERS Safety Report 5442400-7 (Version None)
Quarter: 2007Q3

REPORT INFORMATION
  Report Type: 
  Country: None (occurrence: None)
  Receive Date: 20070904
  Receipt Date: 20070824
  Transmission Date: 20080115
  Serious: Yes (Life-Threatening, Hospitalization)
  Sender: FDA-Public Use
  Company Number: JP-PFIZER INC-2007069895

PATIENT
  Sex: Female
  Weight: 63 kg

DRUGS (1)
  1. NORVASC [Suspect]
     Indication: HYPERTENSION
     Route: 048
     Dates: start: 20040712, end: 20070817

REACTIONS (1)
  - HYPOGLYCAEMIC UNCONSCIOUSNESS [None]
